FAERS Safety Report 15191737 (Version 6)
Quarter: 2018Q3

REPORT INFORMATION
  Report Type: Spontaneous
  Country: GB (occurrence: GB)
  Receive Date: 20180724
  Receipt Date: 20180911
  Transmission Date: 20181010
  Serious: Yes (Hospitalization, Other)
  Sender: FDA-Public Use
  Company Number: PHHY2018GB052380

PATIENT
  Age: 58 Year
  Sex: Male

DRUGS (9)
  1. ISOPHANE INSULIN [Concomitant]
     Active Substance: INSULIN NOS
     Indication: DIABETES MELLITUS
     Dosage: AT BED TIME
     Route: 065
  2. HUMAN INSULATARD [Concomitant]
     Active Substance: INSULIN HUMAN
     Indication: DIABETES MELLITUS
     Dosage: UNK UNK, QHS
     Route: 065
  3. FLUDROCORTISONE [Concomitant]
     Active Substance: FLUDROCORTISONE
     Indication: HYPERKALAEMIA
     Dosage: 100 PG, QD
     Route: 065
  4. HUMALOG [Concomitant]
     Active Substance: INSULIN LISPRO
     Indication: DIABETES MELLITUS
     Dosage: AT MEALS TIME
     Route: 065
  5. FUROSEMIDE. [Concomitant]
     Active Substance: FUROSEMIDE
     Indication: HYPERKALAEMIA
     Dosage: 40 MG, QD
     Route: 065
  6. CALCIUM RESONIUM [Concomitant]
     Indication: HYPERKALAEMIA
     Route: 065
  7. DICLOFENAC [Suspect]
     Active Substance: DICLOFENAC
     Indication: BACK PAIN
     Dosage: UNK
     Route: 065
  8. IBUPROFEN. [Interacting]
     Active Substance: IBUPROFEN
     Indication: BACK PAIN
     Dosage: UNK
     Route: 065
  9. INDOMETHACIN. [Interacting]
     Active Substance: INDOMETHACIN
     Indication: BACK PAIN
     Dosage: UNK
     Route: 065

REACTIONS (5)
  - Labelled drug-drug interaction medication error [Recovered/Resolved]
  - Hypoaldosteronism [Unknown]
  - Product administered at inappropriate site [Recovered/Resolved]
  - Product use in unapproved indication [Recovered/Resolved]
  - Hyperkalaemia [Recovered/Resolved]

NARRATIVE: CASE EVENT DATE: 2005
